FAERS Safety Report 12450260 (Version 1)
Quarter: 2016Q2

REPORT INFORMATION
  Report Type: Spontaneous
  Country: US (occurrence: US)
  Receive Date: 20160609
  Receipt Date: 20160609
  Transmission Date: 20160815
  Serious: Yes (Other)
  Sender: FDA-Public Use
  Company Number: US-AUROBINDO-AUR-APU-2016-05979

PATIENT
  Sex: Female

DRUGS (1)
  1. LOSARTAN AUROBINDO 50MG [Suspect]
     Active Substance: LOSARTAN POTASSIUM
     Indication: BLOOD PRESSURE MEASUREMENT
     Dosage: ONE TABLET A DAY
     Route: 065
     Dates: end: 20160506

REACTIONS (3)
  - Abdominal pain upper [Recovered/Resolved]
  - Product substitution issue [None]
  - Product substitution issue [Recovered/Resolved]
